FAERS Safety Report 8217247-9 (Version None)
Quarter: 2012Q1

REPORT INFORMATION
  Report Type: 
  Country: None (occurrence: None)
  Receive Date: 20120319
  Receipt Date: 20120313
  Transmission Date: 20120608
  Serious: No
  Sender: FDA-Public Use
  Company Number: US-PFIZER INC-2012038833

PATIENT
  Sex: Female
  Weight: 108 kg

DRUGS (2)
  1. LYRICA [Suspect]
     Indication: BACK PAIN
     Dosage: 150 MG, 3X/DAY
     Dates: start: 20110426, end: 20120131
  2. LYRICA [Suspect]
     Indication: NECK PAIN
     Dosage: TAPERED HER DOSE
     Dates: start: 20120201, end: 20120201

REACTIONS (2)
  - MALAISE [None]
  - INFLUENZA LIKE ILLNESS [None]
